FAERS Safety Report 15763955 (Version 1)
Quarter: 2018Q4

REPORT INFORMATION
  Report Type: Spontaneous
  Country: NL (occurrence: NL)
  Receive Date: 20181227
  Receipt Date: 20181227
  Transmission Date: 20190205
  Serious: Yes (Hospitalization)
  Sender: FDA-Public Use
  Company Number: NL-TEVA-2018-NL-992429

PATIENT
  Age: 55 Year
  Sex: Female

DRUGS (1)
  1. OXAZEPAM TABLET, 50 MG (MILLIGRAM) [Suspect]
     Active Substance: OXAZEPAM
     Indication: SLEEP DISORDER
     Dosage: 100 MG ? PIECES IN THE EVENING
     Dates: start: 20181107, end: 20181113

REACTIONS (5)
  - Amnesia [Recovered/Resolved]
  - Vision blurred [Recovered/Resolved]
  - Overdose [Recovered/Resolved]
  - Nightmare [Recovered/Resolved]
  - Depressed level of consciousness [Recovered/Resolved]

NARRATIVE: CASE EVENT DATE: 20181107
